FAERS Safety Report 21947451 (Version 3)
Quarter: 2023Q1

REPORT INFORMATION
  Report Type: Spontaneous
  Country: US (occurrence: US)
  Receive Date: 20230202
  Receipt Date: 20230301
  Transmission Date: 20230418
  Serious: Yes (Hospitalization)
  Sender: FDA-Public Use
  Company Number: US-JNJFOC-20230152363

PATIENT
  Sex: Male
  Weight: 69 kg

DRUGS (5)
  1. UPTRAVI [Suspect]
     Active Substance: SELEXIPAG
     Indication: Pulmonary arterial hypertension
     Route: 048
  2. OPSUMIT [Suspect]
     Active Substance: MACITENTAN
     Indication: Pulmonary arterial hypertension
     Route: 048
  3. TREPROSTINIL [Suspect]
     Active Substance: TREPROSTINIL
     Indication: Product used for unknown indication
     Route: 042
  4. TREPROSTINIL [Suspect]
     Active Substance: TREPROSTINIL
     Dosage: 40NG/KG/MIN BASED ON A WEIGHT OF 72KG
     Route: 058
  5. RIOCIGUAT [Concomitant]
     Active Substance: RIOCIGUAT

REACTIONS (3)
  - Pulmonary arterial hypertension [Unknown]
  - Hospitalisation [Unknown]
  - Cardiac disorder [Unknown]
